FAERS Safety Report 11945113 (Version 1)
Quarter: 2016Q1

REPORT INFORMATION
  Report Type: Spontaneous
  Country: US (occurrence: US)
  Receive Date: 20160125
  Receipt Date: 20160125
  Transmission Date: 20160526
  Serious: No
  Sender: FDA-Public Use
  Company Number: US-009507513-1601USA005846

PATIENT
  Sex: Female

DRUGS (8)
  1. NAPROXEN. [Concomitant]
     Active Substance: NAPROXEN
     Dosage: UNK
  2. ASPIRIN. [Concomitant]
     Active Substance: ASPIRIN
     Dosage: UNK
  3. CALCIUM CHLORIDE. [Concomitant]
     Active Substance: CALCIUM CHLORIDE
     Dosage: UNK
  4. TEMODAR [Suspect]
     Active Substance: TEMOZOLOMIDE
     Indication: ADJUVANT THERAPY
     Dosage: ONCE IN THE MORNING FOR 5 DAYS, WAIT 28 DAYS, AND START REGIMEN AGAIN
     Route: 048
  5. HYDROCHLOROTHIAZIDE (+) TRIAMTERENE [Concomitant]
     Active Substance: HYDROCHLOROTHIAZIDE\TRIAMTERENE
     Dosage: UNK
  6. VIMPAT [Concomitant]
     Active Substance: LACOSAMIDE
     Dosage: UNK
  7. OMEPRAZOLE. [Concomitant]
     Active Substance: OMEPRAZOLE
     Dosage: UNK
     Route: 048
  8. DILATIN [Concomitant]
     Dosage: UNK

REACTIONS (3)
  - Arthritis [Unknown]
  - Inappropriate schedule of drug administration [Unknown]
  - Nausea [Unknown]
